FAERS Safety Report 4598627-X (Version None)
Quarter: 2005Q1

REPORT INFORMATION
  Report Type: 
  Country: None (occurrence: None)
  Receive Date: 20050303
  Receipt Date: 20050303
  Transmission Date: 20050727
  Serious: No
  Sender: FDA-Public Use
  Company Number: None

PATIENT
  Sex: Male
  Weight: 63.5036 kg

DRUGS (1)
  1. NEXIUM [Suspect]
     Indication: DYSPEPSIA
     Dosage: 40 MG

REACTIONS (1)
  - DYSPEPSIA [None]
